FAERS Safety Report 6456361-5 (Version None)
Quarter: 2009Q4

REPORT INFORMATION
  Report Type: 
  Country: None (occurrence: None)
  Receive Date: 20091125
  Receipt Date: 20091117
  Transmission Date: 20100525
  Serious: Yes (Other)
  Sender: FDA-Public Use
  Company Number: DE-ROCHE-670359

PATIENT
  Age: 60 Year
  Sex: Male

DRUGS (5)
  1. NAPROXEN [Suspect]
     Indication: DRUG USE FOR UNKNOWN INDICATION
     Route: 065
  2. LISINOPRIL [Suspect]
     Indication: HYPERTENSION
     Route: 065
  3. AMLODIPINE [Concomitant]
     Indication: HYPERTENSION
  4. CLOPIDOGREL [Concomitant]
  5. RANITIDINE [Concomitant]

REACTIONS (2)
  - HYPERKALAEMIA [None]
  - PARALYSIS [None]
